FAERS Safety Report 21838196 (Version 1)
Quarter: 2023Q1

REPORT INFORMATION
  Report Type: Spontaneous
  Country: DK (occurrence: DK)
  Receive Date: 20230109
  Receipt Date: 20230109
  Transmission Date: 20230417
  Serious: Yes (Other)
  Sender: FDA-Public Use
  Company Number: None

PATIENT
  Age: 33 Year
  Sex: Female

DRUGS (1)
  1. PARLODEL [Suspect]
     Active Substance: BROMOCRIPTINE MESYLATE
     Indication: Pituitary tumour
     Dosage: 1.25 MILLIGRAM, QD (STRENGTH: 2.5 MG)
     Route: 048
     Dates: start: 20140509, end: 20200629

REACTIONS (7)
  - Aortic valve disease mixed [Not Recovered/Not Resolved]
  - Chest pain [Unknown]
  - Cardiac murmur [Unknown]
  - Cardiac aneurysm [Unknown]
  - Mitral valve stenosis [Not Recovered/Not Resolved]
  - Dizziness [Unknown]
  - Dyspnoea [Not Recovered/Not Resolved]

NARRATIVE: CASE EVENT DATE: 20200515
